FAERS Safety Report 25074383 (Version 1)
Quarter: 2025Q1

REPORT INFORMATION
  Report Type: Other
  Country: IR (occurrence: IR)
  Receive Date: 20250313
  Receipt Date: 20250313
  Transmission Date: 20250409
  Serious: Yes (Hospitalization, Other)
  Sender: ANI
  Company Number: IR-ANIPHARMA-015949

PATIENT
  Age: 43 Year
  Sex: Male

DRUGS (5)
  1. CYCLOPHOSPHAMIDE [Suspect]
     Active Substance: CYCLOPHOSPHAMIDE
     Indication: Behcet^s syndrome
  2. PREDNISONE [Concomitant]
     Active Substance: PREDNISONE
     Indication: Behcet^s syndrome
  3. AZATHIOPRINE [Concomitant]
     Active Substance: AZATHIOPRINE
     Indication: Behcet^s syndrome
  4. VALPROATE SODIUM [Concomitant]
     Active Substance: VALPROATE SODIUM
     Indication: Seizure
  5. COVID-19 VACCINE NOS [Concomitant]
     Active Substance: COVID-19 VACCINE
     Indication: COVID-19 immunisation

REACTIONS (2)
  - Extrapulmonary tuberculosis [Recovered/Resolved]
  - Pulmonary tuberculosis [Recovered/Resolved]
